FAERS Safety Report 9358724 (Version 1)
Quarter: 2013Q2

REPORT INFORMATION
  Report Type: Spontaneous
  Country: CA (occurrence: CA)
  Receive Date: 20130620
  Receipt Date: 20130620
  Transmission Date: 20140414
  Serious: Yes (Other)
  Sender: FDA-Public Use
  Company Number: CA-PFIZER INC-2013182228

PATIENT
  Age: 77 Year
  Sex: Male

DRUGS (12)
  1. REVATIO [Suspect]
     Indication: PULMONARY HYPERTENSION
     Dosage: 20 MG, 3X/DAY
     Route: 048
  2. FUROSEMIDE [Interacting]
     Indication: RIGHT VENTRICULAR FAILURE
     Dosage: 60 MG, 2X/DAY
     Route: 042
  3. FUROSEMIDE [Interacting]
     Dosage: 120 MG, 2X/DAY
     Route: 048
  4. DILTIAZEM HCL [Interacting]
     Dosage: 120 MG, DAILY
  5. ASPIRIN [Concomitant]
     Dosage: 81 MG, DAILY
  6. ATORVASTATIN [Concomitant]
     Dosage: 40 MG DAILY
  7. FLUTICASONE/SALMETEROL [Concomitant]
     Dosage: 250/125 MCG INHALED DISKUS BID
     Route: 055
  8. TIOTROPIUM [Concomitant]
     Dosage: 18 MCG, DAILY (INHALED)
     Route: 055
  9. ACETYLCYSTEINE [Concomitant]
     Dosage: 600 MG, 3X/DAY
  10. DOMPERIDONE [Concomitant]
     Dosage: 10 MG, 2X/DAY
  11. VITAMIN B12 [Concomitant]
     Dosage: UNK
  12. CLOPIDOGREL [Concomitant]
     Dosage: 75 MG DAILY

REACTIONS (3)
  - Drug interaction [Unknown]
  - Deafness bilateral [Recovered/Resolved]
  - Tinnitus [None]
